FAERS Safety Report 14203653 (Version 7)
Quarter: 2022Q3

REPORT INFORMATION
  Report Type: Spontaneous
  Country: US (occurrence: US)
  Receive Date: 20171120
  Receipt Date: 20220805
  Transmission Date: 20221026
  Serious: No
  Sender: FDA-Public Use
  Company Number: US-PFIZER INC-2017492674

PATIENT
  Age: 63 Year
  Sex: Female

DRUGS (2)
  1. XELJANZ XR [Suspect]
     Active Substance: TOFACITINIB CITRATE
     Indication: Rheumatoid arthritis
     Dosage: 11 MG
     Route: 048
  2. JANUVIA [Concomitant]
     Active Substance: SITAGLIPTIN PHOSPHATE
     Indication: Diabetes mellitus
     Dosage: UNK

REACTIONS (15)
  - Pain [Recovered/Resolved]
  - Pain in extremity [Unknown]
  - Eye disorder [Unknown]
  - Peripheral swelling [Unknown]
  - Gait disturbance [Unknown]
  - Temperature intolerance [Unknown]
  - Humidity intolerance [Unknown]
  - Joint swelling [Unknown]
  - Product dose omission issue [Unknown]
  - Illness [Unknown]
  - Malaise [Unknown]
  - Swelling [Recovered/Resolved]
  - Intentional product misuse [Unknown]
  - Intentional dose omission [Unknown]
  - Fall [Unknown]

NARRATIVE: CASE EVENT DATE: 20220726
